FAERS Safety Report 11147195 (Version 2)
Quarter: 2015Q3

REPORT INFORMATION
  Report Type: Spontaneous
  Country: BR (occurrence: BR)
  Receive Date: 20150528
  Receipt Date: 20150708
  Transmission Date: 20151125
  Serious: Yes (Other)
  Sender: FDA-Public Use
  Company Number: PHHY2015BR063667

PATIENT
  Age: 57 Year
  Sex: Female
  Weight: 101 kg

DRUGS (5)
  1. FORASEQ [Suspect]
     Active Substance: BUDESONIDE\FORMOTEROL FUMARATE
     Indication: ASTHMA
     Dosage: UNK (12/200 UG), UNK
     Route: 055
  2. AEROLIN [Concomitant]
     Active Substance: ALBUTEROL
     Indication: ASTHMA
     Dosage: UNK, PRN (EVERY NOW AND THEN)
     Route: 055
  3. FORASEQ [Suspect]
     Active Substance: BUDESONIDE\FORMOTEROL FUMARATE
     Dosage: UNK (12/400 UG), QD IN THE EVENING
     Route: 055
  4. RIVOTRIL [Concomitant]
     Active Substance: CLONAZEPAM
     Indication: ANXIETY
     Dosage: UNK, PRN (WHEN WAS UPSET OR ANXIOUS)
     Route: 048
  5. AMLO//AMLODIPINE BESILATE [Concomitant]
     Indication: HEART RATE INCREASED
     Dosage: UNK, QD
     Route: 048

REACTIONS (8)
  - Fatigue [Unknown]
  - Tachycardia [Unknown]
  - Dyspnoea [Unknown]
  - Palpitations [Unknown]
  - Wheezing [Unknown]
  - Incorrect dose administered [Unknown]
  - Weight increased [Unknown]
  - Hypertension [Unknown]
